FAERS Safety Report 7313143-X (Version None)
Quarter: 2011Q1

REPORT INFORMATION
  Report Type: 
  Country: None (occurrence: None)
  Receive Date: 20110216
  Receipt Date: 20110216
  Transmission Date: 20110831
  Serious: Yes (Other)
  Sender: FDA-Public Use
  Company Number: None

PATIENT
  Age: 59 Year
  Sex: Male
  Weight: 79.3795 kg

DRUGS (1)
  1. AMLODIPINE BESYLATE [Suspect]
     Indication: HYPERTENSION
     Dates: start: 20110210, end: 20110214

REACTIONS (2)
  - BLOOD PRESSURE INCREASED [None]
  - PRODUCT SUBSTITUTION ISSUE [None]
